FAERS Safety Report 15205580 (Version 2)
Quarter: 2018Q4

REPORT INFORMATION
  Report Type: Report from Study
  Country: None (occurrence: CO)
  Receive Date: 20180726
  Receipt Date: 20181102
  Transmission Date: 20190204
  Serious: Yes (Hospitalization)
  Sender: FDA-Public Use
  Company Number: CO-ABBVIE-18K-036-2431209-00

PATIENT
  Age: 34 Year
  Sex: Female
  Weight: 62 kg

DRUGS (1)
  1. HUMIRA [Suspect]
     Active Substance: ADALIMUMAB
     Indication: RHEUMATOID ARTHRITIS
     Route: 058
     Dates: start: 20180209, end: 20180625

REACTIONS (3)
  - Pneumothorax [Recovering/Resolving]
  - Ischaemia [Unknown]
  - Cardiac valve disease [Unknown]

NARRATIVE: CASE EVENT DATE: 2018
